FAERS Safety Report 13939586 (Version 1)
Quarter: 2017Q3

REPORT INFORMATION
  Report Type: Spontaneous
  Country: US (occurrence: US)
  Receive Date: 20170906
  Receipt Date: 20170906
  Transmission Date: 20171127
  Serious: No
  Sender: FDA-Public Use
  Company Number: US-PFIZER INC-2017386164

PATIENT
  Age: 84 Year
  Sex: Female
  Weight: 66 kg

DRUGS (2)
  1. IBRANCE [Suspect]
     Active Substance: PALBOCICLIB
     Indication: BREAST CANCER
     Dosage: 125 MG, 1X/DAY
     Dates: start: 201708
  2. NITROBID /00003201/ [Suspect]
     Active Substance: NITROGLYCERIN
     Dosage: 6.5 MG, 2X/DAY

REACTIONS (1)
  - Dizziness [Not Recovered/Not Resolved]
